FAERS Safety Report 24252799 (Version 1)
Quarter: 2024Q3

REPORT INFORMATION
  Report Type: Other
  Country: US (occurrence: US)
  Receive Date: 20240827
  Receipt Date: 20240827
  Transmission Date: 20241016
  Serious: Yes (Life-Threatening, Hospitalization, Other)
  Sender: DEXCEL
  Company Number: US-DEXPHARM-2024-2936

PATIENT
  Age: 3 Year
  Sex: Male

DRUGS (6)
  1. DEXAMETHASONE [Interacting]
     Active Substance: DEXAMETHASONE
  2. VINCRISTINE [Interacting]
     Active Substance: VINCRISTINE
  3. ASPARAGINASE [Concomitant]
     Active Substance: ASPARAGINASE
  4. ALLOPURINOL [Concomitant]
     Active Substance: ALLOPURINOL
     Dosage: HE WAS TITRATED OFF FLUIDS AND ALLOPURINOL BY DAY 5
  5. DEXTROSE [Concomitant]
     Active Substance: DEXTROSE\DEXTROSE MONOHYDRATE
     Dosage: 5% DEXTROSE AND 0.45% NORMAL SALINE AT TWICE THE MAINTENANCE RATE HE WAS TITRATED OFF FLUIDS AND A..
  6. SALINE [Concomitant]
     Active Substance: SODIUM CHLORIDE
     Dosage: 5% DEXTROSE AND 0.45% NORMAL SALINE AT TWICE THE MAINTENANCE RATE HE WAS TITRATED OFF FLUIDS AND A..

REACTIONS (4)
  - Neuropathy peripheral [Unknown]
  - Acute kidney injury [Recovered/Resolved]
  - Calculus urinary [Recovered/Resolved]
  - Drug interaction [Recovered/Resolved]
